FAERS Safety Report 11822388 (Version 1)
Quarter: 2015Q4

REPORT INFORMATION
  Report Type: Spontaneous
  Country: US (occurrence: US)
  Receive Date: 20151210
  Receipt Date: 20151210
  Transmission Date: 20160305
  Serious: No
  Sender: FDA-Public Use
  Company Number: US-JNJFOC-20150616276

PATIENT
  Sex: Female

DRUGS (14)
  1. AMLODIPINE [Concomitant]
     Active Substance: AMLODIPINE BESYLATE
  2. SIMVASTATIN. [Concomitant]
     Active Substance: SIMVASTATIN
  3. VITAMIN B12 [Concomitant]
     Active Substance: CYANOCOBALAMIN
  4. LORATIDINE [Concomitant]
     Active Substance: LORATADINE
  5. STOOL SOFTENER [Concomitant]
     Active Substance: DOCUSATE CALCIUM
  6. METOPROLOL [Concomitant]
     Active Substance: METOPROLOL
  7. KETOCONAZOLE. [Concomitant]
     Active Substance: KETOCONAZOLE
  8. IMBRUVICA [Suspect]
     Active Substance: IBRUTINIB
     Indication: CHRONIC LYMPHOCYTIC LEUKAEMIA
     Route: 048
     Dates: start: 20150405
  9. FLUOCINOLONE ACETONIDE. [Concomitant]
     Active Substance: FLUOCINOLONE ACETONIDE
  10. DESONIDE. [Concomitant]
     Active Substance: DESONIDE
  11. SYNTHROID [Concomitant]
     Active Substance: LEVOTHYROXINE SODIUM
  12. ASPIRIN. [Concomitant]
     Active Substance: ASPIRIN
  13. MAGNESIUM [Concomitant]
     Active Substance: MAGNESIUM
  14. LISINOPRIL. [Concomitant]
     Active Substance: LISINOPRIL

REACTIONS (5)
  - Muscular weakness [Unknown]
  - Gastrooesophageal reflux disease [Unknown]
  - Muscle spasms [Unknown]
  - Constipation [Unknown]
  - Abdominal pain [Unknown]

NARRATIVE: CASE EVENT DATE: 2015
